FAERS Safety Report 8224319-1 (Version None)
Quarter: 2012Q1

REPORT INFORMATION
  Report Type: 
  Country: None (occurrence: None)
  Receive Date: 20120319
  Receipt Date: 20120224
  Transmission Date: 20120608
  Serious: Yes (Other)
  Sender: FDA-Public Use
  Company Number: 2012S1000016

PATIENT
  Age: 67 Year
  Sex: Female

DRUGS (1)
  1. OXANDRIN [Suspect]
     Indication: PRODUCT USED FOR UNKNOWN INDICATION
     Dosage: ;QD;
     Dates: start: 20010927, end: 20011001

REACTIONS (1)
  - TREMOR [None]
